FAERS Safety Report 19744664 (Version 1)
Quarter: 2021Q3

REPORT INFORMATION
  Report Type: Spontaneous
  Country: DE (occurrence: DE)
  Receive Date: 20210825
  Receipt Date: 20210825
  Transmission Date: 20211014
  Serious: Yes (Other)
  Sender: FDA-Public Use
  Company Number: DE-AMGEN-DEUSP2021127930

PATIENT
  Age: 49 Year
  Sex: Female

DRUGS (7)
  1. PEMBROLIZUMAB. [Concomitant]
     Active Substance: PEMBROLIZUMAB
     Dosage: 200 MILLIGRAM, Q3WK
  2. TRASTUZUMAB. [Suspect]
     Active Substance: TRASTUZUMAB
     Indication: PRODUCT USED FOR UNKNOWN INDICATION
     Dosage: 04 MILLIGRAMS PER KILOGRAMS
     Route: 065
  3. BEVACIZUMAB. [Concomitant]
     Active Substance: BEVACIZUMAB
     Dosage: 15 MILLIGRAMS PER KILOGRAMS
  4. XGEVA [Suspect]
     Active Substance: DENOSUMAB
     Indication: METASTASES TO BONE
     Dosage: 120 MILLIGRAM, Q4WK
     Route: 058
  5. CISPLATIN. [Concomitant]
     Active Substance: CISPLATIN
     Dosage: 50 MILLIGRAMS PER KILOGRAMS
  6. CARBOPLATIN. [Concomitant]
     Active Substance: CARBOPLATIN
  7. PACLITAXEL. [Concomitant]
     Active Substance: PACLITAXEL
     Dosage: 80 MILLIGRAMS PER SQUARE METER

REACTIONS (2)
  - Acquired gene mutation [Unknown]
  - Vaginal adenocarcinoma [Recovering/Resolving]
